FAERS Safety Report 8582986-7 (Version None)
Quarter: 2012Q3

REPORT INFORMATION
  Report Type: 
  Country: None (occurrence: None)
  Receive Date: 20120809
  Receipt Date: 20120807
  Transmission Date: 20120928
  Serious: Yes (Other)
  Sender: FDA-Public Use
  Company Number: US-PFIZER INC-2012155036

PATIENT
  Age: 69 Year
  Sex: Female

DRUGS (20)
  1. CETIRIZINE HYDROCHLORIDE [Concomitant]
     Dosage: 10 MG, 1X/DAY
     Route: 048
  2. NAMENDA [Concomitant]
     Dosage: 10 MG, 2X/DAY
     Route: 048
  3. MULTI-VITAMINS [Concomitant]
     Dosage: 1 TABLET, DAILY
     Route: 048
  4. CARAFATE [Concomitant]
     Dosage: 1 G, BEFORE MEALS AND AT BEDTIME
  5. LACTULOSE [Concomitant]
     Dosage: 2 TBSP, 2X/DAY
     Route: 048
  6. ROBITUSSIN-DM [Concomitant]
     Dosage: 10 ML, EVERY 4-6 HOURS AS NEEDED
     Route: 048
  7. HYDROCODONE BITARTRATE + ACETAMINOPHEN [Concomitant]
     Dosage: 10 MG/325 MG 1 TABLET, 3X/DAY
     Route: 048
  8. LOXAPINE SUCCINATE [Concomitant]
     Dosage: 50 MG AT BEDTIME
     Route: 048
  9. FLONASE [Concomitant]
     Dosage: 50 MCG/1ACTUATION AT 1 SPRAY EACH NOSTRIL, TWICE A DAY
     Route: 045
  10. MAALOX PLUS [Concomitant]
     Dosage: 30 ML, EVERY 6 HOURS AS NEEDED
     Route: 048
  11. CLONAZEPAM [Concomitant]
     Dosage: 2 MG, AT BEDTIME
     Route: 048
  12. CYMBALTA [Concomitant]
     Dosage: 30 MG, EVERY MORNING
     Route: 048
  13. DONEPEZIL HYDROCHLORIDE [Concomitant]
     Dosage: 10 MG, AT BEDTIME
     Route: 048
  14. LORAZEPAM [Concomitant]
     Dosage: 0.5 MG, EVERY 4 HOURS AS NEEDED)
     Route: 048
  15. OMEPRAZOLE [Concomitant]
     Dosage: 20 MG, 1X/DAY
     Route: 048
  16. MORPHINE SULFATE [Concomitant]
     Dosage: 0.25-2ML, EVERY HOUR AS NEEDED
     Route: 048
  17. GEODON [Suspect]
     Dosage: 80 MG, 2X/DAY
     Route: 048
  18. FLUVOXAMINE MALEATE [Concomitant]
     Dosage: 50 MG DAILY
     Route: 048
  19. FENTANYL [Concomitant]
     Dosage: 1 PATCH, EVERY 72 HOURS AS DIRECTED)
  20. ZYPREXA [Concomitant]
     Dosage: 20 MG, 2X/DAY
     Route: 048

REACTIONS (7)
  - GASTROOESOPHAGEAL REFLUX DISEASE [None]
  - BACK PAIN [None]
  - HYPERSENSITIVITY [None]
  - SCHIZOPHRENIA SIMPLE [None]
  - HIATUS HERNIA [None]
  - DRUG ABUSE [None]
  - SCOLIOSIS [None]
